FAERS Safety Report 20290552 (Version 1)
Quarter: 2022Q1

REPORT INFORMATION
  Report Type: Spontaneous
  Country: US (occurrence: US)
  Receive Date: 20220104
  Receipt Date: 20220104
  Transmission Date: 20220424
  Serious: Yes (Hospitalization, Other)
  Sender: FDA-Public Use
  Company Number: US-OTSUKA-2021_046041

PATIENT
  Sex: Male

DRUGS (1)
  1. INQOVI [Suspect]
     Active Substance: CEDAZURIDINE\DECITABINE
     Indication: Product used for unknown indication
     Dosage: (35 MG DECITABINE AND 100 MG CEDAZURIDINE)
     Route: 065

REACTIONS (2)
  - Platelet count decreased [Unknown]
  - Transfusion [Unknown]

NARRATIVE: CASE EVENT DATE: 20211201
